FAERS Safety Report 12541294 (Version 3)
Quarter: 2016Q3

REPORT INFORMATION
  Report Type: Spontaneous
  Country: DE (occurrence: DE)
  Receive Date: 20160708
  Receipt Date: 20160729
  Transmission Date: 20161109
  Serious: Yes (Life-Threatening, Hospitalization)
  Sender: FDA-Public Use
  Company Number: DE-B.I. PHARMACEUTICALS,INC./RIDGEFIELD-2016-BI-43666DE

PATIENT
  Age: 68 Year
  Sex: Male
  Weight: 90 kg

DRUGS (16)
  1. PRAXBIND [Suspect]
     Active Substance: IDARUCIZUMAB
     Indication: MUCOSAL HAEMORRHAGE
     Dosage: 5 G
     Route: 042
     Dates: start: 20160708, end: 20160708
  2. JONOSTERIL [Concomitant]
     Active Substance: CALCIUM ACETATE\MAGNESIUM ACETATE\POTASSIUM ACETATE\SODIUM ACETATE\SODIUM CHLORIDE
     Indication: PRODUCT USED FOR UNKNOWN INDICATION
     Dosage: 1 ANZ
     Route: 065
  3. PRADAXA [Suspect]
     Active Substance: DABIGATRAN ETEXILATE MESYLATE
     Indication: ATRIAL FIBRILLATION
     Dosage: 220 MG
     Route: 048
     Dates: end: 20160703
  4. PRAXBIND [Suspect]
     Active Substance: IDARUCIZUMAB
     Indication: GASTROINTESTINAL HAEMORRHAGE
     Dosage: 5 G
     Route: 042
     Dates: start: 20160707, end: 20160707
  5. CANDESARTAN [Concomitant]
     Active Substance: CANDESARTAN
     Indication: HYPERTENSION
     Dosage: 16 MG
     Route: 048
  6. TORASEMID [Concomitant]
     Active Substance: TORSEMIDE
     Indication: HYPERTENSION
     Dosage: 20 MG
     Route: 048
  7. TORASEMID [Concomitant]
     Active Substance: TORSEMIDE
     Indication: OEDEMA
     Dosage: 20 MG
     Route: 048
  8. LANTUS [Concomitant]
     Active Substance: INSULIN GLARGINE
     Indication: TYPE 2 DIABETES MELLITUS
     Dosage: 18 U
     Route: 058
  9. PRAXBIND [Suspect]
     Active Substance: IDARUCIZUMAB
     Indication: BLOOD URINE PRESENT
  10. HYDROCHLOROTHIAZID [Concomitant]
     Active Substance: HYDROCHLOROTHIAZIDE
     Indication: HYPERTENSION
     Dosage: 25 MG
     Route: 048
  11. PANTOPRAZOL [Concomitant]
     Active Substance: PANTOPRAZOLE SODIUM
     Indication: PRODUCT USED FOR UNKNOWN INDICATION
     Dosage: 80 MG
     Route: 048
  12. PRAXBIND [Suspect]
     Active Substance: IDARUCIZUMAB
     Indication: SHOCK HAEMORRHAGIC
     Dosage: 5 G
     Route: 042
     Dates: start: 20160703, end: 20160703
  13. H-INSULIN [Concomitant]
     Indication: TYPE 2 DIABETES MELLITUS
     Dosage: 22 U
     Route: 058
  14. PRAXBIND [Suspect]
     Active Substance: IDARUCIZUMAB
     Indication: HAEMATEMESIS
  15. PRAXBIND [Suspect]
     Active Substance: IDARUCIZUMAB
     Indication: MELAENA
  16. PRAXBIND [Suspect]
     Active Substance: IDARUCIZUMAB
     Indication: EPISTAXIS

REACTIONS (12)
  - Haemorrhage [Not Recovered/Not Resolved]
  - Melaena [Not Recovered/Not Resolved]
  - Gastrointestinal haemorrhage [Not Recovered/Not Resolved]
  - Coagulation test abnormal [Not Recovered/Not Resolved]
  - Blood urine present [Not Recovered/Not Resolved]
  - Epistaxis [Not Recovered/Not Resolved]
  - Shock haemorrhagic [Not Recovered/Not Resolved]
  - Mucosal haemorrhage [Not Recovered/Not Resolved]
  - Renal impairment [Unknown]
  - Blood creatinine abnormal [Unknown]
  - Haematemesis [Not Recovered/Not Resolved]
  - Off label use [Not Recovered/Not Resolved]

NARRATIVE: CASE EVENT DATE: 20160703
